FAERS Safety Report 5068542-6 (Version None)
Quarter: 2006Q3

REPORT INFORMATION
  Report Type: 
  Country: None (occurrence: None)
  Receive Date: 20060802
  Receipt Date: 20051116
  Transmission Date: 20061208
  Serious: No
  Sender: FDA-Public Use
  Company Number: US-BRISTOL-MYERS SQUIBB COMPANY-13183355

PATIENT
  Age: 71 Year
  Sex: Female
  Weight: 91 kg

DRUGS (4)
  1. WARFARIN SODIUM [Suspect]
     Indication: ATRIAL FIBRILLATION
     Dosage: DURATION: FOR YEARS
  2. FUROSEMIDE [Concomitant]
  3. POTASSIUM [Concomitant]
  4. ZOCOR [Concomitant]

REACTIONS (2)
  - LOWER EXTREMITY MASS [None]
  - UPPER EXTREMITY MASS [None]
